FAERS Safety Report 22296004 (Version 1)
Quarter: 2023Q2

REPORT INFORMATION
  Report Type: Spontaneous
  Country: US (occurrence: US)
  Receive Date: 20230508
  Receipt Date: 20230508
  Transmission Date: 20230722
  Serious: Yes (Death, Other)
  Sender: FDA-Public Use
  Company Number: US-SA-SAC20230302000948

PATIENT
  Age: 56 Year
  Sex: Male

DRUGS (2)
  1. DUPIXENT [Suspect]
     Active Substance: DUPILUMAB
     Indication: Eosinophilic oesophagitis
     Dosage: 300 MG, QW
     Route: 058
     Dates: start: 202212
  2. RADICAVA [Concomitant]
     Active Substance: EDARAVONE
     Dosage: 5ML QD FOR 10 OUT OF 14 DAYS THEN 14 DAYS OFF. BY MOUTH OR FEEDING TUBE
     Route: 048

REACTIONS (1)
  - Amyotrophic lateral sclerosis [Fatal]
